FAERS Safety Report 5848554-2 (Version None)
Quarter: 2008Q3

REPORT INFORMATION
  Report Type: 
  Country: None (occurrence: None)
  Receive Date: 20080818
  Receipt Date: 20080807
  Transmission Date: 20090109
  Serious: Yes (Other)
  Sender: FDA-Public Use
  Company Number: US-AMGEN-US300032

PATIENT
  Sex: Male

DRUGS (2)
  1. SENSIPAR [Suspect]
     Indication: HYPERPARATHYROIDISM SECONDARY
     Route: 065
  2. EPOGEN [Suspect]
     Indication: DIALYSIS
     Route: 065

REACTIONS (2)
  - LEUKOPENIA [None]
  - THERAPEUTIC RESPONSE DECREASED [None]
